FAERS Safety Report 8267959 (Version 5)
Quarter: 2013Q2

REPORT INFORMATION
  Report Type: Spontaneous
  Country: US (occurrence: US)
  Receive Date: 20111129
  Receipt Date: 20130604
  Transmission Date: 20140414
  Serious: Yes (Hospitalization, Other)
  Sender: FDA-Public Use
  Company Number: US-ROCHE-792657

PATIENT
  Sex: Male
  Weight: 74.91 kg

DRUGS (4)
  1. ACCUTANE [Suspect]
     Indication: ACNE
     Route: 065
     Dates: start: 19880101, end: 19931231
  2. ACCUTANE [Suspect]
     Route: 065
  3. PREDNISONE [Concomitant]
  4. ZANTAC [Concomitant]

REACTIONS (9)
  - Crohn^s disease [Unknown]
  - Suicidal ideation [Unknown]
  - Intestinal obstruction [Unknown]
  - Inflammatory bowel disease [Unknown]
  - Depression [Unknown]
  - Emotional distress [Unknown]
  - Intestinal haemorrhage [Unknown]
  - Back pain [Unknown]
  - Osteomalacia [Unknown]
